FAERS Safety Report 5376910-8 (Version None)
Quarter: 2007Q2

REPORT INFORMATION
  Report Type: 
  Country: None (occurrence: None)
  Receive Date: 20070628
  Receipt Date: 20070628
  Transmission Date: 20071010
  Serious: No
  Sender: FDA-Public Use
  Company Number: None

PATIENT
  Age: 39 Year
  Sex: Female
  Weight: 58.0604 kg

DRUGS (1)
  1. HYDROXYCHLOROQUINE PLAQUENIL, 200MG, SANDOZ [Suspect]
     Indication: SYSTEMIC LUPUS ERYTHEMATOSUS
     Dosage: 200 MG 2X'S DAY ORAL
     Route: 048
     Dates: start: 20070307, end: 20070327

REACTIONS (6)
  - ABASIA [None]
  - DIZZINESS [None]
  - EYE MOVEMENT DISORDER [None]
  - NAUSEA [None]
  - VERTIGO [None]
  - VOMITING [None]
